FAERS Safety Report 6726574-3 (Version None)
Quarter: 2010Q2

REPORT INFORMATION
  Report Type: 
  Country: None (occurrence: None)
  Receive Date: 20100514
  Receipt Date: 20100503
  Transmission Date: 20101027
  Serious: Yes (Death)
  Sender: FDA-Public Use
  Company Number: MX-ELI_LILLY_AND_COMPANY-MX201005000887

PATIENT
  Age: 80 Year
  Sex: Female

DRUGS (3)
  1. ZYPREXA [Suspect]
     Indication: SENILE DEMENTIA
     Dosage: 40 MG, DAILY (1/D)
     Route: 065
     Dates: start: 20100401, end: 20100401
  2. ZYPREXA [Suspect]
     Dosage: 30 MG, DAILY (1/D)
     Route: 065
     Dates: start: 20100401, end: 20100401
  3. ZYPREXA [Suspect]
     Dosage: 20 MG, DAILY (1/D)
     Route: 065
     Dates: start: 20100401

REACTIONS (5)
  - MYOCARDIAL INFARCTION [None]
  - OFF LABEL USE [None]
  - OVERDOSE [None]
  - SOMNOLENCE [None]
  - WRONG TECHNIQUE IN DRUG USAGE PROCESS [None]
